FAERS Safety Report 13653829 (Version 3)
Quarter: 2017Q3

REPORT INFORMATION
  Report Type: Report from Study
  Country: DE (occurrence: DE)
  Receive Date: 20170614
  Receipt Date: 20170710
  Transmission Date: 20171127
  Serious: Yes (Other)
  Sender: FDA-Public Use
  Company Number: PHHY2015DE145246

PATIENT
  Sex: Male

DRUGS (6)
  1. PANTOZOL (ERYTHROMYCIN\SULFISOXAZOLE) [Concomitant]
     Active Substance: ERYTHROMYCIN\SULFISOXAZOLE
     Indication: ABDOMINAL PAIN UPPER
     Dosage: 40 MG, QD
     Route: 048
     Dates: start: 20150227
  2. PAZOPANIB [Suspect]
     Active Substance: PAZOPANIB
     Indication: METASTATIC RENAL CELL CARCINOMA
     Dosage: 800 MG, QD
     Route: 048
     Dates: start: 20140707, end: 20160829
  3. TRAMAL LONG [Concomitant]
     Active Substance: TRAMADOL
     Indication: PAIN IN EXTREMITY
  4. TRAMAL LONG [Concomitant]
     Active Substance: TRAMADOL
     Indication: SPINAL DISORDER
     Dosage: 200 MG, QD
     Route: 048
     Dates: start: 20061031
  5. NOVAMIN (PROCHLORPERAZINE) [Concomitant]
     Active Substance: PROCHLORPERAZINE
     Indication: PAIN
     Dosage: 2000 MG, QD
     Route: 048
     Dates: start: 20140616
  6. PAZOPANIB [Suspect]
     Active Substance: PAZOPANIB
     Dosage: 600 MG, UNK
     Route: 048
     Dates: start: 20160830, end: 20161108

REACTIONS (8)
  - Transaminases increased [Recovered/Resolved]
  - Hair colour changes [Not Recovered/Not Resolved]
  - Abdominal pain upper [Recovered/Resolved]
  - Cough [Recovered/Resolved]
  - Pain in extremity [Recovered/Resolved]
  - Skin ulcer [Recovered/Resolved]
  - Gamma-glutamyltransferase increased [Not Recovered/Not Resolved]
  - Weight decreased [Recovered/Resolved]

NARRATIVE: CASE EVENT DATE: 20140728
